FAERS Safety Report 6359534-5 (Version None)
Quarter: 2009Q3

REPORT INFORMATION
  Report Type: 
  Country: None (occurrence: None)
  Receive Date: 20090917
  Receipt Date: 20090914
  Transmission Date: 20100115
  Serious: No
  Sender: FDA-Public Use
  Company Number: US-JNJFOC-20090904663

PATIENT
  Sex: Male
  Weight: 122.47 kg

DRUGS (3)
  1. FENTANYL TRANSDERMAL SYSTEM [Suspect]
     Dosage: 100 UG/HR AND 75 UG/HR
     Route: 062
     Dates: start: 20090827
  2. FENTANYL TRANSDERMAL SYSTEM [Suspect]
     Route: 062
     Dates: start: 20090827
  3. FENTANYL TRANSDERMAL SYSTEM [Suspect]
     Indication: PAIN IN EXTREMITY
     Route: 062
     Dates: start: 20090827

REACTIONS (3)
  - DRUG INEFFECTIVE [None]
  - TREATMENT NONCOMPLIANCE [None]
  - WRONG TECHNIQUE IN DRUG USAGE PROCESS [None]
